FAERS Safety Report 8162755 (Version 4)
Quarter: 2012Q4

REPORT INFORMATION
  Report Type: 
  Country: US (occurrence: US)
  Receive Date: 20110930
  Receipt Date: 20121231
  Transmission Date: 20130627
  Serious: Yes (Hospitalization)
  Sender: FDA-Public Use
  Company Number: US-BIOGENIDEC-2011BI036812

PATIENT
  Age: 41 Year
  Sex: Female

DRUGS (2)
  1. AVONEX [Suspect]
     Indication: MULTIPLE SCLEROSIS
     Route: 030
     Dates: start: 19990401, end: 20081201
  2. AVONEX [Suspect]
     Indication: MULTIPLE SCLEROSIS
     Route: 030
     Dates: start: 20100212

REACTIONS (12)
  - Endometrial cancer [Recovered/Resolved]
  - Pulmonary embolism [Recovered/Resolved]
  - Hypertension [Recovered/Resolved]
  - Migraine [Recovered/Resolved]
  - Tunnel vision [Recovered/Resolved]
  - Diabetes mellitus [Not Recovered/Not Resolved]
  - Blood glucose increased [Recovered/Resolved]
  - Gout [Not Recovered/Not Resolved]
  - Diarrhoea [Recovered/Resolved]
  - Feeling abnormal [Recovered/Resolved]
  - Pain [Recovered/Resolved]
  - Influenza like illness [Recovered/Resolved]
